FAERS Safety Report 4948706-X (Version None)
Quarter: 2006Q1

REPORT INFORMATION
  Report Type: 
  Country: None (occurrence: None)
  Receive Date: 20060313
  Receipt Date: 20060228
  Transmission Date: 20060701
  Serious: Yes (Hospitalization)
  Sender: FDA-Public Use
  Company Number: 2005164003

PATIENT
  Age: 41 Year
  Sex: Male
  Weight: 72 kg

DRUGS (6)
  1. SUTENT [Suspect]
     Indication: RENAL CELL CARCINOMA STAGE UNSPECIFIED
     Dosage: 50 MG (50 MG, 1 DAY INTERVAL: EVERYDAY), ORAL
     Route: 048
     Dates: start: 20051104, end: 20051129
  2. IRON (IRON) [Concomitant]
  3. FUROSEMIDE [Concomitant]
  4. OMEPRAZOLE [Concomitant]
  5. ALGINIC ACID (ALGINIC ACID) [Concomitant]
  6. PROPRANOLOL [Concomitant]

REACTIONS (3)
  - EPISTAXIS [None]
  - PROTEINURIA [None]
  - THROMBOCYTOPENIA [None]
